FAERS Safety Report 4298035-5 (Version None)
Quarter: 2004Q1

REPORT INFORMATION
  Report Type: 
  Country: None (occurrence: None)
  Receive Date: 20040218
  Receipt Date: 20011016
  Transmission Date: 20041129
  Serious: Yes (Other)
  Sender: FDA-Public Use
  Company Number: US-BRISTOL-MYERS SQUIBB COMPANY-11537420

PATIENT

DRUGS (2)
  1. STADOL [Suspect]
     Route: 045
     Dates: start: 19950502
  2. STADOL [Suspect]
     Route: 042

REACTIONS (1)
  - DEPENDENCE [None]
